FAERS Safety Report 12411591 (Version 1)
Quarter: 2016Q2

REPORT INFORMATION
  Report Type: Spontaneous
  Country: US (occurrence: None)
  Receive Date: 20160526
  Receipt Date: 20160526
  Transmission Date: 20160815
  Serious: Yes (Disabling)
  Sender: FDA-Public Use
  Company Number: None

PATIENT
  Age: 44 Year
  Sex: Female
  Weight: 58.51 kg

DRUGS (13)
  1. OMEGA-3 ACIDS [Concomitant]
     Active Substance: OMEGA-3 FATTY ACIDS
  2. MSM [Concomitant]
     Active Substance: DIMETHYL SULFONE
  3. COQ10 [Concomitant]
     Active Substance: UBIDECARENONE
  4. VITAMIN B12 [Concomitant]
     Active Substance: CYANOCOBALAMIN
  5. BIRTH CONTROL PILLS [Concomitant]
     Active Substance: UNSPECIFIED INGREDIENT
  6. LIPOSOMAL GLUTATHIONE [Concomitant]
  7. EPA [Concomitant]
  8. DHA [Concomitant]
     Active Substance: DIETARY SUPPLEMENT
  9. GLUCOSAMINE [Concomitant]
     Active Substance: GLUCOSAMINE
  10. LEVAQUIN [Suspect]
     Active Substance: LEVOFLOXACIN
     Indication: SINUSITIS
     Dosage: 1 PILL (10 PILLS TOTAL) ONCE DAILY MOUTH
     Route: 048
     Dates: start: 20160330, end: 20160403
  11. HYALURONIC ACID [Concomitant]
     Active Substance: HYALURONIC ACID
  12. MAGNESIUM [Concomitant]
     Active Substance: MAGNESIUM
  13. CHONDROITIN [Concomitant]
     Active Substance: CHONDROITIN

REACTIONS (10)
  - Depressed mood [None]
  - Discomfort [None]
  - Musculoskeletal discomfort [None]
  - Pain in extremity [None]
  - Gait disturbance [None]
  - Tendon pain [None]
  - Fear [None]
  - Paraesthesia [None]
  - Burning sensation [None]
  - Arthralgia [None]

NARRATIVE: CASE EVENT DATE: 20160402
